FAERS Safety Report 10096532 (Version 2)
Quarter: 2014Q2

REPORT INFORMATION
  Report Type: Spontaneous
  Country: US (occurrence: US)
  Receive Date: 20140422
  Receipt Date: 20140422
  Transmission Date: 20141212
  Serious: No
  Sender: FDA-Public Use
  Company Number: US-GILEAD-2012-0064006

PATIENT
  Age: 48 Year
  Sex: Female

DRUGS (3)
  1. LETAIRIS [Suspect]
     Indication: PULMONARY ARTERIAL HYPERTENSION
     Dosage: 5 MG, QD
     Dates: start: 2012
  2. LITHIUM [Concomitant]
  3. SEROQUEL [Concomitant]

REACTIONS (1)
  - Hypercholesterolaemia [Not Recovered/Not Resolved]
